FAERS Safety Report 4743520-2 (Version None)
Quarter: 2005Q3

REPORT INFORMATION
  Report Type: 
  Country: None (occurrence: None)
  Receive Date: 20050812
  Receipt Date: 20050712
  Transmission Date: 20060218
  Serious: Yes (Hospitalization)
  Sender: FDA-Public Use
  Company Number: FR-RB-1865-2005

PATIENT
  Age: 27 Year
  Sex: Female

DRUGS (2)
  1. BUPRENORPHINE HCL [Suspect]
     Indication: DRUG DEPENDENCE
     Dosage: 12-14 MG QD
     Route: 042
  2. BUPRENORPHINE HCL [Suspect]
     Route: 065

REACTIONS (7)
  - BACTERAEMIA [None]
  - BACTERIAL INFECTION [None]
  - DRUG DEPENDENCE [None]
  - ERYSIPELAS [None]
  - INTENTIONAL MISUSE [None]
  - PREGNANCY [None]
  - SKIN INFLAMMATION [None]
